FAERS Safety Report 14924335 (Version 2)
Quarter: 2018Q2

REPORT INFORMATION
  Report Type: Spontaneous
  Country: US (occurrence: US)
  Receive Date: 20180522
  Receipt Date: 20180613
  Transmission Date: 20180711
  Serious: No
  Sender: FDA-Public Use
  Company Number: US-VIFOR (INTERNATIONAL) INC.-VIT-2018-04200

PATIENT
  Sex: Male

DRUGS (19)
  1. FENOFIBRATE. [Concomitant]
     Active Substance: FENOFIBRATE
  2. PARACETAMOL~~HYDROCODONE [Concomitant]
  3. MAGNESIUM [Concomitant]
     Active Substance: MAGNESIUM
  4. SIMVASTATIN. [Concomitant]
     Active Substance: SIMVASTATIN
  5. XARELTO [Concomitant]
     Active Substance: RIVAROXABAN
  6. COMBIGAN [Concomitant]
     Active Substance: BRIMONIDINE TARTRATE\TIMOLOL MALEATE
  7. PREVACID [Concomitant]
     Active Substance: LANSOPRAZOLE
  8. BORAGO OFFICINALIS OIL [Concomitant]
  9. LACTOBACILLUS GASSERI~~BIFIDOBACTERIUM LONGUM~~BIFIDOBACTERIUM BIFIDUM [Concomitant]
  10. GLIPIZIDE. [Concomitant]
     Active Substance: GLIPIZIDE
  11. FLECAINIDE ACETATE. [Concomitant]
     Active Substance: FLECAINIDE ACETATE
  12. LISINOPRIL. [Concomitant]
     Active Substance: LISINOPRIL
  13. COLECALCIFEROL [Concomitant]
     Active Substance: CHOLECALCIFEROL
  14. COD-LIVER OIL [Concomitant]
     Active Substance: FISH OIL
  15. VITAMINS NOS [Concomitant]
     Active Substance: VITAMINS
  16. CYANOCOBALAMIN. [Concomitant]
     Active Substance: CYANOCOBALAMIN
  17. VELTASSA [Suspect]
     Active Substance: PATIROMER
     Indication: HYPERKALAEMIA
     Route: 048
     Dates: start: 20171020
  18. AMLODIPINE BESILATE [Concomitant]
     Active Substance: AMLODIPINE BESYLATE
  19. METFORMIN HYDROCHLORIDE. [Concomitant]
     Active Substance: METFORMIN HYDROCHLORIDE

REACTIONS (2)
  - Diarrhoea [Unknown]
  - Asthenia [Unknown]
